FAERS Safety Report 23459933 (Version 1)
Quarter: 2024Q1

REPORT INFORMATION
  Report Type: Spontaneous
  Country: JP (occurrence: JP)
  Receive Date: 20240131
  Receipt Date: 20240131
  Transmission Date: 20240410
  Serious: Yes (Other)
  Sender: FDA-Public Use
  Company Number: JP-TAKEDA-2024TJP001451

PATIENT

DRUGS (1)
  1. ZEJULA [Suspect]
     Active Substance: NIRAPARIB
     Indication: Ovarian cancer
     Dosage: UNK
     Route: 048
     Dates: start: 20230726, end: 20231224

REACTIONS (2)
  - Metastases to lymph nodes [Unknown]
  - Pruritus [Unknown]

NARRATIVE: CASE EVENT DATE: 20231201
